FAERS Safety Report 9104304 (Version 3)
Quarter: 2013Q2

REPORT INFORMATION
  Report Type: Spontaneous
  Country: JP (occurrence: JP)
  Receive Date: 20130219
  Receipt Date: 20130509
  Transmission Date: 20140414
  Serious: Yes (Hospitalization)
  Sender: FDA-Public Use
  Company Number: JP-ROCHE-1190844

PATIENT
  Age: 50 Year
  Sex: Female

DRUGS (4)
  1. TAMIFLU [Suspect]
     Indication: INFLUENZA
     Route: 048
     Dates: start: 20130107, end: 20130108
  2. AMINO ACID [Concomitant]
     Indication: INFLUENZA
     Route: 048
     Dates: start: 20130107, end: 20130108
  3. CALONAL [Concomitant]
     Indication: INFLUENZA
     Route: 048
     Dates: start: 20130107, end: 20130108
  4. MEDICON [Concomitant]
     Indication: INFLUENZA
     Route: 048
     Dates: start: 20130107, end: 20130108

REACTIONS (4)
  - Granulocytopenia [Recovered/Resolved]
  - Nausea [Unknown]
  - White blood cell count decreased [Unknown]
  - Feeling abnormal [Unknown]
